FAERS Safety Report 5694445-X (Version None)
Quarter: 2008Q2

REPORT INFORMATION
  Report Type: 
  Country: None (occurrence: None)
  Receive Date: 20080404
  Receipt Date: 20080331
  Transmission Date: 20081010
  Serious: Yes (Death, Other)
  Sender: FDA-Public Use
  Company Number: BE-BRISTOL-MYERS SQUIBB COMPANY-14126221

PATIENT
  Age: 49 Year
  Sex: Female

DRUGS (1)
  1. CEFEPIME [Suspect]
     Indication: INFECTION

REACTIONS (3)
  - AGITATION [None]
  - CARDIO-RESPIRATORY ARREST [None]
  - CONFUSIONAL STATE [None]
